FAERS Safety Report 12909031 (Version 1)
Quarter: 2016Q4

REPORT INFORMATION
  Report Type: Spontaneous
  Country: US (occurrence: US)
  Receive Date: 20161103
  Receipt Date: 20161103
  Transmission Date: 20170207
  Serious: No
  Sender: FDA-Public Use
  Company Number: US-JAZZ-2016-US-016869

PATIENT
  Age: 55 Year
  Sex: Female

DRUGS (21)
  1. ALDACTAZIDE [Concomitant]
     Active Substance: HYDROCHLOROTHIAZIDE\SPIRONOLACTONE
  2. ALLOPURINOL. [Concomitant]
     Active Substance: ALLOPURINOL
  3. CALCIUM CARBONATE. [Concomitant]
     Active Substance: CALCIUM CARBONATE
  4. FLONASE ALLERGY RLF [Concomitant]
  5. XYREM [Suspect]
     Active Substance: SODIUM OXYBATE
     Indication: NARCOLEPSY
     Dosage: 2.5 G, BID
     Route: 048
     Dates: start: 201608
  6. LIDODERM [Concomitant]
     Active Substance: LIDOCAINE
  7. LYRICA [Concomitant]
     Active Substance: PREGABALIN
  8. PRESERVISION AREDS [Concomitant]
     Active Substance: MINERALS\VITAMINS
  9. TOPAMAX [Concomitant]
     Active Substance: TOPIRAMATE
  10. ANUSOL HC [Concomitant]
     Active Substance: HYDROCORTISONE
  11. COREG [Concomitant]
     Active Substance: CARVEDILOL
  12. CYMBALTA [Concomitant]
     Active Substance: DULOXETINE HYDROCHLORIDE
  13. MACRODANTIN [Concomitant]
     Active Substance: NITROFURANTOIN
  14. TRICOR [Concomitant]
     Active Substance: FENOFIBRATE
  15. ATORVASTATIN [Concomitant]
     Active Substance: ATORVASTATIN
  16. ASPIRIN. [Concomitant]
     Active Substance: ASPIRIN
  17. COENZYME Q10 [Concomitant]
     Active Substance: UBIDECARENONE
  18. IMDUR [Concomitant]
     Active Substance: ISOSORBIDE MONONITRATE
  19. PROTONIX [Concomitant]
     Active Substance: PANTOPRAZOLE SODIUM
  20. HUMALOG [Concomitant]
     Active Substance: INSULIN LISPRO
  21. TIZANIDINE HCL [Concomitant]
     Active Substance: TIZANIDINE HYDROCHLORIDE

REACTIONS (1)
  - Blood glucose decreased [Not Recovered/Not Resolved]

NARRATIVE: CASE EVENT DATE: 201608
